FAERS Safety Report 20815812 (Version 4)
Quarter: 2022Q3

REPORT INFORMATION
  Report Type: Report from Study
  Country: US (occurrence: US)
  Receive Date: 20220511
  Receipt Date: 20220712
  Transmission Date: 20221027
  Serious: Yes (Hospitalization)
  Sender: FDA-Public Use
  Company Number: US-009507513-2101USA001818

PATIENT
  Age: 65 Year
  Sex: Male
  Weight: 81.6 kg

DRUGS (14)
  1. BELZUTIFAN [Suspect]
     Active Substance: BELZUTIFAN
     Indication: Clear cell renal cell carcinoma
     Dosage: 200 MILLIGRAM, QD
     Route: 048
     Dates: start: 20201230, end: 20210103
  2. BELZUTIFAN [Suspect]
     Active Substance: BELZUTIFAN
     Dosage: 120 MILLIGRAM, QD
     Route: 048
     Dates: start: 20210108, end: 20210108
  3. PRINIVIL [Suspect]
     Active Substance: LISINOPRIL
     Indication: Hypertension
     Dosage: 20 MILLIGRAM, QD; FORMULATION: PILL
     Route: 048
     Dates: start: 20201202, end: 20201230
  4. PROSCAR [Concomitant]
     Active Substance: FINASTERIDE
     Indication: Benign prostatic hyperplasia
     Dosage: 5 MILLIGRAM, QD; FORMULATION: PILL
     Route: 048
     Dates: start: 199501
  5. LIPITOR [Concomitant]
     Active Substance: ATORVASTATIN CALCIUM
     Indication: Hyperlipidaemia
     Dosage: 40 MILLIGRAM, QD; FORMULATION: PILL
     Route: 048
     Dates: start: 201401
  6. ALLEGRA ALLERGY [Concomitant]
     Active Substance: FEXOFENADINE HYDROCHLORIDE
     Indication: Hypersensitivity
     Dosage: 180 MILLIGRAM, QD; FORMULATION: PILL
     Route: 048
     Dates: start: 201601
  7. VITAMINS NOS [Concomitant]
     Active Substance: VITAMINS
     Indication: Routine health maintenance
     Dosage: 1 TABLET, QD; FORMULATION: PILL
     Route: 048
     Dates: start: 201701
  8. HYDROCORTISONE ACETATE [Concomitant]
     Active Substance: HYDROCORTISONE ACETATE
     Indication: Pruritus
     Dosage: TOTAL DAILY DOSE: 2.5 PERCENT, PRN
     Route: 061
     Dates: start: 201901
  9. HYDROCORTISONE [Concomitant]
     Active Substance: HYDROCORTISONE
     Indication: Adrenal insufficiency
     Dosage: 25 MILLIGRAM, QD; FORMULATION: PILL
     Route: 048
     Dates: start: 20200413
  10. TYLENOL [Concomitant]
     Active Substance: ACETAMINOPHEN
     Indication: Musculoskeletal chest pain
     Dosage: TOTAL DIALY DOSE: 2 TABLET, PRN; FORMULATION: PILL
     Route: 048
     Dates: start: 20201207
  11. CALCIUM CARBONATE [Concomitant]
     Active Substance: CALCIUM CARBONATE
     Indication: Routine health maintenance
     Dosage: 500 MILLIGRAM, QD; FORMULATION: PILL
     Route: 048
     Dates: start: 20201221, end: 20201222
  12. ZOLEDRONIC ACID [Concomitant]
     Active Substance: ZOLEDRONIC ACID
     Indication: Hypercalcaemia
     Dosage: 4 MILLIGRAM, ONCE
     Route: 042
     Dates: start: 20201222, end: 20201222
  13. SODIUM CHLORIDE [Concomitant]
     Active Substance: SODIUM CHLORIDE
     Indication: Hypercalcaemia
     Dosage: 1000 MILLILITER, ONCE
     Route: 042
     Dates: start: 20201222, end: 20201222
  14. SODIUM CHLORIDE [Concomitant]
     Active Substance: SODIUM CHLORIDE
     Indication: Blood creatinine increased
     Dosage: 1000 MILLILITER, ONCE
     Route: 042
     Dates: start: 20201230, end: 20201230

REACTIONS (3)
  - Hypoxia [Recovered/Resolved]
  - Blood creatinine increased [Not Recovered/Not Resolved]
  - Haemoglobin decreased [Not Recovered/Not Resolved]

NARRATIVE: CASE EVENT DATE: 20210102
